FAERS Safety Report 7168167-2 (Version None)
Quarter: 2010Q4

REPORT INFORMATION
  Report Type: 
  Country: None (occurrence: None)
  Receive Date: 20101216
  Receipt Date: 20101213
  Transmission Date: 20110411
  Serious: Yes (Death, Other)
  Sender: FDA-Public Use
  Company Number: US-PFIZER INC-2010170782

PATIENT
  Sex: Male
  Weight: 90.703 kg

DRUGS (2)
  1. REVATIO [Suspect]
     Indication: LUNG DISORDER
     Dosage: 3 PILLS DAILY
     Route: 048
     Dates: start: 20070101
  2. REVATIO [Suspect]
     Indication: DYSPNOEA

REACTIONS (3)
  - MYOPIA [None]
  - PULMONARY HAEMORRHAGE [None]
  - VISION BLURRED [None]
